FAERS Safety Report 16370222 (Version 1)
Quarter: 2019Q2

REPORT INFORMATION
  Report Type: Report from Study
  Country: None (occurrence: LB)
  Receive Date: 20190530
  Receipt Date: 20190530
  Transmission Date: 20190711
  Serious: Yes (Other)
  Sender: FDA-Public Use
  Company Number: LB-ABBVIE-19K-093-2799855-00

PATIENT
  Age: 27 Year
  Sex: Female
  Weight: 59 kg

DRUGS (4)
  1. HUMIRA [Suspect]
     Active Substance: ADALIMUMAB
     Route: 058
     Dates: start: 20181023, end: 20190512
  2. HUMIRA [Suspect]
     Active Substance: ADALIMUMAB
     Indication: HIDRADENITIS
     Dosage: 160MG OVER TWO DAYS
     Route: 058
     Dates: start: 20180925, end: 20180925
  3. HUMIRA [Suspect]
     Active Substance: ADALIMUMAB
     Dosage: 80MG SECOND LOADING DOSE
     Route: 058
     Dates: start: 20181009, end: 20181009
  4. HUMIRA [Suspect]
     Active Substance: ADALIMUMAB
     Dosage: 160MG LOADING DOSE OVER TWO DAYS
     Route: 058
     Dates: start: 20180926, end: 20180926

REACTIONS (1)
  - Tooth repair [Recovered/Resolved]

NARRATIVE: CASE EVENT DATE: 20190517
